FAERS Safety Report 7459905-X (Version None)
Quarter: 2011Q2

REPORT INFORMATION
  Report Type: 
  Country: None (occurrence: None)
  Receive Date: 20110427
  Receipt Date: 20110413
  Transmission Date: 20111010
  Serious: Yes (Hospitalization)
  Sender: FDA-Public Use
  Company Number: TRP_07679_2011

PATIENT
  Age: 46 Year
  Sex: Male

DRUGS (9)
  1. ACETYLSALICYLIC AICID [Concomitant]
  2. CLONAZEPAM [Concomitant]
  3. AMITRIPTYLINE HCL [Suspect]
     Dosage: 75 MG QD
     Dates: start: 20060101, end: 20060101
  4. AMITRIPTYLINE HCL [Suspect]
     Dosage: 75 MG QD
     Dates: end: 20060101
  5. METFORMIN HCL [Concomitant]
  6. RIBAVIRIN [Suspect]
     Indication: HEPATITIS C
     Dosage: (1250 MG, DAILY)
     Dates: start: 20061001, end: 20070101
  7. PEGINTERFERON ALFA-2B [Suspect]
     Indication: HEPATITIS C
     Dosage: (1.5 UG/KG)
     Dates: start: 20061001, end: 20070101
  8. CAPTOPRIL [Concomitant]
  9. COCAINE [Suspect]
     Dosage: 1 DF INTRAVENOUS
     Route: 042

REACTIONS (17)
  - SUICIDE ATTEMPT [None]
  - MEMORY IMPAIRMENT [None]
  - FEELING GUILTY [None]
  - DRUG DEPENDENCE [None]
  - AGGRESSION [None]
  - HEAD INJURY [None]
  - TREATMENT NONCOMPLIANCE [None]
  - DRUG ABUSE [None]
  - INSOMNIA [None]
  - ABDOMINAL INJURY [None]
  - ANXIETY [None]
  - INCORRECT DOSE ADMINISTERED [None]
  - DECREASED INTEREST [None]
  - SELF ESTEEM DECREASED [None]
  - VICTIM OF CRIME [None]
  - DECREASED APPETITE [None]
  - LACERATION [None]
